FAERS Safety Report 17298830 (Version 1)
Quarter: 2020Q1

REPORT INFORMATION
  Report Type: Spontaneous
  Country: AU (occurrence: AU)
  Receive Date: 20200121
  Receipt Date: 20200121
  Transmission Date: 20200409
  Serious: Yes (Other)
  Sender: FDA-Public Use
  Company Number: AU-SUNOVION-2020DSP000756

PATIENT
  Age: 75 Year

DRUGS (1)
  1. LATUDA [Suspect]
     Active Substance: LURASIDONE HYDROCHLORIDE
     Indication: PRODUCT USED FOR UNKNOWN INDICATION
     Dosage: 40MG IN AM, 80MG IN PM
     Route: 048

REACTIONS (3)
  - Product use issue [Unknown]
  - Psychotic symptom [Unknown]
  - Off label use [Unknown]
